FAERS Safety Report 9109836 (Version 1)
Quarter: 2013Q1

REPORT INFORMATION
  Report Type: Spontaneous
  Country: DE (occurrence: DE)
  Receive Date: 20130222
  Receipt Date: 20130222
  Transmission Date: 20140127
  Serious: Yes (Hospitalization)
  Sender: FDA-Public Use
  Company Number: DE-ASTRAZENECA-2013SE02218

PATIENT
  Sex: Male

DRUGS (2)
  1. BELOC-ZOK [Suspect]
     Route: 048
  2. METOHEXAL [Suspect]
     Route: 065

REACTIONS (1)
  - Blood pressure increased [Unknown]
